FAERS Safety Report 6016496-8 (Version None)
Quarter: 2008Q4

REPORT INFORMATION
  Report Type: 
  Country: None (occurrence: None)
  Receive Date: 20081222
  Receipt Date: 20081211
  Transmission Date: 20090506
  Serious: Yes (Other)
  Sender: FDA-Public Use
  Company Number: FR-ELI_LILLY_AND_COMPANY-FR200812003093

PATIENT
  Age: 35 Year
  Sex: Male

DRUGS (1)
  1. CYMBALTA [Suspect]
     Dosage: 30 MG, DAILY (1/D)
     Route: 048
     Dates: start: 20080101, end: 20080101

REACTIONS (3)
  - ANGIOGRAM CEREBRAL ABNORMAL [None]
  - DIZZINESS [None]
  - GAIT DISTURBANCE [None]
